FAERS Safety Report 7910525-X (Version None)
Quarter: 2011Q4

REPORT INFORMATION
  Report Type: 
  Country: None (occurrence: None)
  Receive Date: 20111111
  Receipt Date: 20111031
  Transmission Date: 20120403
  Serious: Yes (Hospitalization, Other)
  Sender: FDA-Public Use
  Company Number: PHHY2011DK72799

PATIENT
  Sex: Female
  Weight: 75 kg

DRUGS (2)
  1. TASIGNA [Suspect]
     Indication: CHRONIC MYELOID LEUKAEMIA
     Dosage: 400 MG, BID
     Route: 048
     Dates: start: 20090809, end: 20110803
  2. SIMVASTATIN [Interacting]
     Indication: HYPERCHOLESTEROLAEMIA
     Dosage: 40 MG, QD
     Dates: start: 20090101

REACTIONS (5)
  - CARDIAC DISORDER [None]
  - ATRIAL FIBRILLATION [None]
  - FLUID RETENTION [None]
  - DRUG INTERACTION [None]
  - BLOOD SODIUM ABNORMAL [None]
